FAERS Safety Report 6355429-1 (Version None)
Quarter: 2009Q3

REPORT INFORMATION
  Report Type: 
  Country: None (occurrence: None)
  Receive Date: 20090914
  Receipt Date: 20090904
  Transmission Date: 20100115
  Serious: Yes (Hospitalization)
  Sender: FDA-Public Use
  Company Number: PHHY2009FR37914

PATIENT
  Age: 60 Year
  Sex: Male

DRUGS (1)
  1. ACLASTA [Suspect]
     Indication: OSTEOPOROSIS
     Route: 042

REACTIONS (5)
  - LOSS OF CONSCIOUSNESS [None]
  - LUNG INFECTION [None]
  - MALAISE [None]
  - PYREXIA [None]
  - RHONCHI [None]
